FAERS Safety Report 12562098 (Version 2)
Quarter: 2016Q4

REPORT INFORMATION
  Report Type: Report from Study
  Country: US (occurrence: US)
  Receive Date: 20160715
  Receipt Date: 20161021
  Transmission Date: 20170207
  Serious: Yes (Death)
  Sender: FDA-Public Use
  Company Number: US-MALLINCKRODT-T201602877

PATIENT
  Age: 78 Year
  Sex: Female

DRUGS (9)
  1. SPIRONOLACTONE. [Concomitant]
     Active Substance: SPIRONOLACTONE
  2. ZOCOR [Concomitant]
     Active Substance: SIMVASTATIN
  3. TRAMADOL. [Concomitant]
     Active Substance: TRAMADOL
     Dosage: LESS THAN OR EQUAL TO 4/DAY
  4. PREVACID [Concomitant]
     Active Substance: LANSOPRAZOLE
  5. REPOSITORY CORTICOTROPIN INJECTION [Suspect]
     Active Substance: CORTICOTROPIN
     Indication: RHEUMATOID ARTHRITIS
     Dosage: 80 UNITS 3 TIMES WEEKLY
     Route: 058
  6. TORSEMIDE. [Concomitant]
     Active Substance: TORSEMIDE
  7. VASOTEC [Concomitant]
     Active Substance: ENALAPRIL MALEATE
  8. METFORMIN [Concomitant]
     Active Substance: METFORMIN HYDROCHLORIDE
  9. LEVOTHYROXINE. [Concomitant]
     Active Substance: LEVOTHYROXINE

REACTIONS (1)
  - Chronic disease [Fatal]

NARRATIVE: CASE EVENT DATE: 20160630
